FAERS Safety Report 23113155 (Version 1)
Quarter: 2023Q4

REPORT INFORMATION
  Report Type: Spontaneous
  Country: CA (occurrence: None)
  Receive Date: 20231027
  Receipt Date: 20231027
  Transmission Date: 20240109
  Serious: Yes (Death)
  Sender: FDA-Public Use
  Company Number: CA-ROCHE-3445151

PATIENT
  Age: 84 Year
  Sex: Male

DRUGS (8)
  1. RITUXIMAB [Suspect]
     Active Substance: RITUXIMAB
     Indication: Microscopic polyangiitis
     Route: 042
  2. RITUXIMAB [Suspect]
     Active Substance: RITUXIMAB
     Indication: Glomerulonephritis
     Route: 042
  3. RITUXIMAB [Suspect]
     Active Substance: RITUXIMAB
     Indication: Microscopic polyangiitis
     Route: 065
  4. RITUXIMAB [Suspect]
     Active Substance: RITUXIMAB
     Indication: Glomerulonephritis
  5. ACETAMINOPHEN [Concomitant]
     Active Substance: ACETAMINOPHEN
     Route: 048
  6. DIPHENHYDRAMINE [Concomitant]
     Active Substance: DIPHENHYDRAMINE
     Route: 065
  7. METHYLPREDNISOLONE [Concomitant]
     Active Substance: METHYLPREDNISOLONE
     Route: 042
  8. RITUXIMAB [Concomitant]
     Active Substance: RITUXIMAB
     Route: 065

REACTIONS (2)
  - COVID-19 [Fatal]
  - Off label use [Fatal]
